FAERS Safety Report 7402618-0 (Version None)
Quarter: 2011Q2

REPORT INFORMATION
  Report Type: 
  Country: None (occurrence: None)
  Receive Date: 20110408
  Receipt Date: 20110404
  Transmission Date: 20111010
  Serious: Yes (Other)
  Sender: FDA-Public Use
  Company Number: US-PFIZER INC-2010156331

PATIENT
  Sex: Female

DRUGS (5)
  1. LIPITOR [Suspect]
     Indication: BLOOD CHOLESTEROL INCREASED
     Dosage: 10 MG, DAILY
     Route: 048
     Dates: start: 20070101
  2. TRAMADOL [Concomitant]
     Dosage: 50 MG, 2X/DAY
     Dates: start: 20070101
  3. METFORMIN [Concomitant]
     Dosage: 500 MG, 1X/DAY
     Dates: start: 20070101
  4. OMEPRAZOLE [Concomitant]
     Dosage: 20 MG, 1X/DAY
     Dates: start: 20070101
  5. TRAZODONE [Concomitant]
     Dosage: 50 MG, 1X/DAY
     Dates: start: 20070101

REACTIONS (5)
  - SPINAL OSTEOARTHRITIS [None]
  - NERVE INJURY [None]
  - THROAT IRRITATION [None]
  - GASTROOESOPHAGEAL REFLUX DISEASE [None]
  - PAIN [None]
